FAERS Safety Report 9090034 (Version 1)
Quarter: 2013Q1

REPORT INFORMATION
  Report Type: Report from Study
  Country: US (occurrence: US)
  Receive Date: 20130131
  Receipt Date: 20130131
  Transmission Date: 20140127
  Serious: No
  Sender: FDA-Public Use
  Company Number: US-ABBOTT-12P-163-0994761-00

PATIENT
  Age: 72 None
  Sex: Female
  Weight: 95.79 kg

DRUGS (1)
  1. HUMIRA [Suspect]
     Indication: RHEUMATOID ARTHRITIS
     Dates: start: 2007

REACTIONS (7)
  - Incorrect dose administered [Unknown]
  - Device malfunction [Unknown]
  - Drug dose omission [Recovered/Resolved]
  - Tooth abscess [Recovered/Resolved]
  - Injection site vesicles [Recovered/Resolved]
  - Injection site pain [Recovered/Resolved]
  - Injection site pain [Not Recovered/Not Resolved]
